FAERS Safety Report 8307871-7 (Version None)
Quarter: 2012Q2

REPORT INFORMATION
  Report Type: 
  Country: None (occurrence: None)
  Receive Date: 20120424
  Receipt Date: 20120401
  Transmission Date: 20120825
  Serious: Yes (Hospitalization)
  Sender: FDA-Public Use
  Company Number: CN-GILEAD-2012-0052955

PATIENT
  Age: 48 Year
  Sex: Male

DRUGS (2)
  1. ADEFOVIR DIPIVOXIL [Suspect]
     Dosage: 10MG PER DAY
     Route: 048
  2. ADEFOVIR DIPIVOXIL [Suspect]
     Indication: HEPATITIS B
     Dosage: 10 MG, QD
     Route: 048
     Dates: start: 20050101

REACTIONS (9)
  - GAIT DISTURBANCE [None]
  - BLOOD LACTIC ACID INCREASED [None]
  - FANCONI SYNDROME ACQUIRED [None]
  - AMINO ACID LEVEL INCREASED [None]
  - BONE PAIN [None]
  - BLOOD PHOSPHORUS DECREASED [None]
  - OSTEOPOROSIS [None]
  - BONE METABOLISM DISORDER [None]
  - RENAL IMPAIRMENT [None]
